FAERS Safety Report 17009562 (Version 1)
Quarter: 2019Q4

REPORT INFORMATION
  Report Type: Spontaneous
  Country: NO (occurrence: NO)
  Receive Date: 20191108
  Receipt Date: 20191108
  Transmission Date: 20200122
  Serious: Yes (Other)
  Sender: FDA-Public Use
  Company Number: NO-PFIZER INC-2019480692

PATIENT
  Sex: Male

DRUGS (3)
  1. CORDARONE [Suspect]
     Active Substance: AMIODARONE HYDROCHLORIDE
     Dosage: 200 MG, QD, X1 IN WEEK 3
     Dates: end: 201910
  2. CORDARONE [Suspect]
     Active Substance: AMIODARONE HYDROCHLORIDE
     Dosage: 200 MG, QW, 3 IN WEEK 1
     Dates: start: 20190107
  3. CORDARONE [Suspect]
     Active Substance: AMIODARONE HYDROCHLORIDE
     Dosage: 200 MG, QD, X2 IN WEEK 2

REACTIONS (2)
  - Pulmonary fibrosis [Unknown]
  - Emphysema [Unknown]

NARRATIVE: CASE EVENT DATE: 2019
